FAERS Safety Report 10240224 (Version 3)
Quarter: 2014Q2

REPORT INFORMATION
  Report Type: Spontaneous
  Country: PE (occurrence: PE)
  Receive Date: 20140617
  Receipt Date: 20140618
  Transmission Date: 20141212
  Serious: Yes (Hospitalization)
  Sender: FDA-Public Use
  Company Number: PHHY2014PE071905

PATIENT
  Age: 87 Year
  Sex: Female

DRUGS (5)
  1. EXELON PATCH [Suspect]
     Indication: DEMENTIA ALZHEIMER^S TYPE
     Dosage: 9.5 MG, QD (10CM2)
     Route: 062
     Dates: start: 201403
  2. CARVILOL [Concomitant]
     Indication: CARDIAC FAILURE
     Dosage: 12.5 MG, QD
     Route: 048
  3. LOSARTAN [Concomitant]
     Indication: HYPERTENSION
     Dosage: 50 MG, BID
     Route: 048
  4. MIRTAZAPINE [Concomitant]
     Indication: ANTIDEPRESSANT THERAPY
     Dosage: 30 MG, QD
     Route: 048
  5. FOLIC ACID [Concomitant]
     Indication: VITAMIN SUPPLEMENTATION
     Dosage: 0.5 MG, QD
     Route: 048

REACTIONS (2)
  - Pemphigus [Unknown]
  - Blister [Unknown]
